FAERS Safety Report 5670591-1 (Version None)
Quarter: 2008Q1

REPORT INFORMATION
  Report Type: 
  Country: None (occurrence: None)
  Receive Date: 20080313
  Receipt Date: 20080229
  Transmission Date: 20080703
  Serious: No
  Sender: FDA-Public Use
  Company Number: 2008S1003434

PATIENT
  Age: 21 Year
  Sex: Male

DRUGS (1)
  1. AMNESTEEM [Suspect]
     Dosage: 40 MG; 3 TIMES A DAY; ORAL
     Route: 048
     Dates: start: 20071114

REACTIONS (2)
  - LOCAL SWELLING [None]
  - PRURITUS [None]
